FAERS Safety Report 12932591 (Version 3)
Quarter: 2016Q4

REPORT INFORMATION
  Report Type: Report from Study
  Country: US (occurrence: US)
  Receive Date: 20161111
  Receipt Date: 20161214
  Transmission Date: 20170207
  Serious: Yes (Other)
  Sender: FDA-Public Use
  Company Number: US-MALLINCKRODT-T201605564

PATIENT
  Age: 76 Year
  Sex: Female

DRUGS (3)
  1. REPOSITORY CORTICOTROPIN INJECTION [Suspect]
     Active Substance: CORTICOTROPIN
     Dosage: 40U/.5ML; TWICE WEEKLY FOR TWO WEEKS
     Route: 058
     Dates: start: 201611
  2. REPOSITORY CORTICOTROPIN INJECTION [Suspect]
     Active Substance: CORTICOTROPIN
     Indication: RHEUMATOID ARTHRITIS
     Dosage: 40U/0.5ML; 1 TIME WEEKLY
     Route: 058
     Dates: start: 20150704
  3. CIMZIA [Concomitant]
     Active Substance: CERTOLIZUMAB PEGOL

REACTIONS (12)
  - Pain in extremity [Not Recovered/Not Resolved]
  - Back pain [Not Recovered/Not Resolved]
  - Dizziness [Recovering/Resolving]
  - Arthralgia [Recovering/Resolving]
  - Depressed mood [Not Recovered/Not Resolved]
  - Hallucination, visual [Recovering/Resolving]
  - Gait disturbance [Not Recovered/Not Resolved]
  - Malaise [Recovering/Resolving]
  - Fall [Recovering/Resolving]
  - Insomnia [Recovering/Resolving]
  - Amnesia [Not Recovered/Not Resolved]
  - Peripheral swelling [Not Recovered/Not Resolved]

NARRATIVE: CASE EVENT DATE: 20161106
